FAERS Safety Report 6506163-6 (Version None)
Quarter: 2009Q4

REPORT INFORMATION
  Report Type: 
  Country: None (occurrence: None)
  Receive Date: 20091218
  Receipt Date: 20091207
  Transmission Date: 20100525
  Serious: Yes (Hospitalization, Other)
  Sender: FDA-Public Use
  Company Number: AT-SANOFI-AVENTIS-2009SA007836

PATIENT
  Age: 70 Year

DRUGS (17)
  1. OXALIPLATIN [Suspect]
     Indication: COLON CANCER
     Route: 041
     Dates: start: 20071002, end: 20071002
  2. OXALIPLATIN [Suspect]
     Route: 041
     Dates: start: 20071220, end: 20071220
  3. CETUXIMAB [Suspect]
     Indication: COLON CANCER
     Route: 042
     Dates: start: 20071002, end: 20071002
  4. CETUXIMAB [Suspect]
     Route: 042
     Dates: start: 20071219, end: 20071219
  5. FLUOROURACIL [Suspect]
     Indication: COLON CANCER
     Route: 042
     Dates: start: 20071002, end: 20071002
  6. FLUOROURACIL [Suspect]
     Route: 042
     Dates: start: 20071220, end: 20071220
  7. FOLINIC ACID [Suspect]
     Indication: COLON CANCER
     Route: 041
     Dates: start: 20071002, end: 20071002
  8. FOLINIC ACID [Suspect]
     Route: 041
     Dates: start: 20071220, end: 20071220
  9. DIPROGENTA [Concomitant]
  10. FAMCICLOVIR [Concomitant]
  11. NULYTELY [Concomitant]
  12. PIPERACILLIN SODIUM [Concomitant]
  13. CIPROFLOXACIN HYDROCHLORIDE [Concomitant]
     Route: 042
  14. ENOXAPARIN SODIUM [Concomitant]
     Route: 058
  15. ACETYLSALICYLIC ACID [Concomitant]
  16. PENTOXIFYLLINE [Concomitant]
  17. PANTOPRAZOLE SODIUM [Concomitant]
     Route: 042

REACTIONS (3)
  - CHOLECYSTITIS [None]
  - DIARRHOEA [None]
  - PNEUMONIA [None]
